FAERS Safety Report 6693234-7 (Version None)
Quarter: 2010Q2

REPORT INFORMATION
  Report Type: 
  Country: None (occurrence: None)
  Receive Date: 20100422
  Receipt Date: 20100409
  Transmission Date: 20101027
  Serious: Yes (Other)
  Sender: FDA-Public Use
  Company Number: GB-GENENTECH-300762

PATIENT
  Age: 43 Year
  Sex: Female

DRUGS (6)
  1. XOLAIR [Suspect]
     Indication: ASTHMA
     Dosage: 300 MG, UNK
     Route: 058
     Dates: start: 20090709
  2. FLIXONASE [Concomitant]
     Indication: DRUG USE FOR UNKNOWN INDICATION
  3. PREDNISOLONE [Concomitant]
     Indication: DRUG USE FOR UNKNOWN INDICATION
  4. SERETIDE [Concomitant]
     Indication: DRUG USE FOR UNKNOWN INDICATION
  5. TRAMADOL HCL [Concomitant]
     Indication: PAIN
     Dosage: 100 MG, PRN
     Route: 048
  6. VENTOLIN [Concomitant]
     Indication: DRUG USE FOR UNKNOWN INDICATION

REACTIONS (3)
  - DIARRHOEA [None]
  - GIARDIASIS [None]
  - VOMITING [None]
